FAERS Safety Report 18340774 (Version 1)
Quarter: 2020Q4

REPORT INFORMATION
  Report Type: Spontaneous
  Country: BR (occurrence: BR)
  Receive Date: 20201003
  Receipt Date: 20201003
  Transmission Date: 20210113
  Serious: Yes (Hospitalization, Other)
  Sender: FDA-Public Use
  Company Number: BR-AMGEN-BRASP2020156927

PATIENT
  Age: 67 Year
  Sex: Female
  Weight: 56 kg

DRUGS (6)
  1. ADDERALL [Concomitant]
     Active Substance: AMPHETAMINE ASPARTATE\AMPHETAMINE SULFATE\DEXTROAMPHETAMINE SACCHARATE\DEXTROAMPHETAMINE SULFATE
     Dosage: 700 INTERNATIONAL UNIT
  2. RISEDRONATE [Concomitant]
     Active Substance: RISEDRONATE SODIUM
     Dosage: 150 MILLIGRAM
  3. PROLIA [Suspect]
     Active Substance: DENOSUMAB
     Indication: OSTEOPOROSIS
     Dosage: UNK UNK, Q6MO
     Route: 058
     Dates: start: 20190604
  4. ARTROLIVE [Concomitant]
     Active Substance: CHONDROITIN SULFATE (BOVINE)\GLUCOSAMINE SULFATE
     Indication: OSTEOPOROSIS
     Dosage: UNK UNK, QD
  5. CLONAZEPAM. [Concomitant]
     Active Substance: CLONAZEPAM
     Indication: SLEEP DISORDER
     Dosage: UNK
  6. OSCAL D [CALCIUM CARBONATE;COLECALCIFEROL] [Concomitant]
     Indication: OSTEOPOROSIS
     Dosage: UNK

REACTIONS (8)
  - Head injury [Unknown]
  - Vertigo [Unknown]
  - Incisional hernia repair [Unknown]
  - Product storage error [Unknown]
  - Fall [Unknown]
  - Hypoaesthesia oral [Recovering/Resolving]
  - Headache [Not Recovered/Not Resolved]
  - Myalgia [Not Recovered/Not Resolved]

NARRATIVE: CASE EVENT DATE: 2019
